FAERS Safety Report 12986627 (Version 2)
Quarter: 2016Q4

REPORT INFORMATION
  Report Type: Spontaneous
  Country: JP (occurrence: JP)
  Receive Date: 20161130
  Receipt Date: 20161205
  Transmission Date: 20170207
  Serious: Yes (Hospitalization)
  Sender: FDA-Public Use
  Company Number: JP-GLAXOSMITHKLINE-JP2016GSK176715

PATIENT
  Age: 94 Year
  Sex: Female

DRUGS (1)
  1. TERBINAFINE. [Suspect]
     Active Substance: TERBINAFINE
     Indication: DERMATOPHYTOSIS OF NAIL
     Dosage: UNK
     Route: 048

REACTIONS (5)
  - Drug eruption [Unknown]
  - Erythema [Unknown]
  - Rash [Unknown]
  - Pyrexia [Unknown]
  - Rash pustular [Unknown]

NARRATIVE: CASE EVENT DATE: 201507
